FAERS Safety Report 17398198 (Version 1)
Quarter: 2020Q1

REPORT INFORMATION
  Report Type: Spontaneous
  Country: CN (occurrence: CN)
  Receive Date: 20200210
  Receipt Date: 20200210
  Transmission Date: 20200409
  Serious: Yes (Other)
  Sender: FDA-Public Use
  Company Number: CN-PFIZER INC-2020054884

PATIENT
  Age: 76 Year
  Sex: Female
  Weight: 59 kg

DRUGS (3)
  1. TAZOCIN [Suspect]
     Active Substance: PIPERACILLIN SODIUM\TAZOBACTAM SODIUM
     Indication: ANTI-INFECTIVE THERAPY
     Dosage: 4.500 G, 2X/DAY
     Route: 041
     Dates: start: 20200114, end: 20200117
  2. LAI LI XIN [Concomitant]
     Active Substance: LEVOFLOXACIN
     Indication: ANTI-INFECTIVE THERAPY
     Dosage: 0.500 G, 1X/DAY
     Route: 041
     Dates: start: 20200108, end: 20200121
  3. YI SUO [DOXOFYLLINE] [Concomitant]
     Active Substance: DOXOFYLLINE
     Indication: ASTHMA
     Dosage: 0.200 G, 2X/DAY
     Route: 041
     Dates: start: 20200106, end: 20200116

REACTIONS (1)
  - Haemorrhage subcutaneous [Recovered/Resolved]

NARRATIVE: CASE EVENT DATE: 20200116
